FAERS Safety Report 4677590-7 (Version None)
Quarter: 2005Q2

REPORT INFORMATION
  Report Type: 
  Country: None (occurrence: None)
  Receive Date: 20050531
  Receipt Date: 20050526
  Transmission Date: 20051028
  Serious: Yes (Death)
  Sender: FDA-Public Use
  Company Number: PHBS2005CA07641

PATIENT

DRUGS (2)
  1. LAMICTAL [Suspect]
     Route: 065
  2. LAMISIL [Suspect]
     Route: 065

REACTIONS (2)
  - MEDICATION ERROR [None]
  - WRONG DRUG ADMINISTERED [None]
